FAERS Safety Report 8308676-3 (Version None)
Quarter: 2012Q2

REPORT INFORMATION
  Report Type: 
  Country: None (occurrence: None)
  Receive Date: 20120424
  Receipt Date: 20120417
  Transmission Date: 20120825
  Serious: No
  Sender: FDA-Public Use
  Company Number: US-PFIZER INC-2011300762

PATIENT
  Sex: Female
  Weight: 112 kg

DRUGS (1)
  1. CORTISPORIN [Suspect]
     Dosage: UNK
     Route: 047

REACTIONS (3)
  - OCULAR HYPERAEMIA [None]
  - EYE PRURITUS [None]
  - EYE SWELLING [None]
